FAERS Safety Report 6175762-6 (Version None)
Quarter: 2009Q2

REPORT INFORMATION
  Report Type: 
  Country: None (occurrence: None)
  Receive Date: 20090501
  Receipt Date: 20090428
  Transmission Date: 20091009
  Serious: Yes (Hospitalization)
  Sender: FDA-Public Use
  Company Number: AU-ASTRAZENECA-2009AP02927

PATIENT
  Age: 19 Year
  Sex: Female

DRUGS (2)
  1. SEROQUEL [Suspect]
     Dosage: TEMPORARILY STOPPED FOR 11 DAYS WHILST IN HOSPITAL
     Route: 048
  2. SEROQUEL [Suspect]
     Dosage: RESTARTED DOSE AFTER COMING OUT OF HOSPITAL
     Route: 048

REACTIONS (1)
  - HEPATITIS [None]
